FAERS Safety Report 4453251-4 (Version None)
Quarter: 2004Q3

REPORT INFORMATION
  Report Type: 
  Country: None (occurrence: None)
  Receive Date: 20040902
  Receipt Date: 20040511
  Transmission Date: 20050211
  Serious: No
  Sender: FDA-Public Use
  Company Number: 200417851BWH

PATIENT
  Age: 57 Year
  Sex: Male
  Weight: 160 kg

DRUGS (6)
  1. LEVITRA [Suspect]
     Indication: ERECTILE DYSFUNCTION
     Dosage: 10 MG, PRN, ORAL
     Route: 048
     Dates: start: 20040420
  2. ZANTAC [Concomitant]
  3. VIAGRA [Concomitant]
  4. DIOVAN [Concomitant]
  5. CARDIAZEM [Concomitant]
  6. ASPIRIN [Concomitant]

REACTIONS (1)
  - DYSPEPSIA [None]
